FAERS Safety Report 10560876 (Version 3)
Quarter: 2014Q4

REPORT INFORMATION
  Report Type: Spontaneous
  Country: BR (occurrence: BR)
  Receive Date: 20141103
  Receipt Date: 20141201
  Transmission Date: 20150529
  Serious: Yes (Other)
  Sender: FDA-Public Use
  Company Number: PHHY2014BR140261

PATIENT
  Age: 7 Year
  Sex: Male
  Weight: 40 kg

DRUGS (1)
  1. RISPERIDONE SANDOZ [Suspect]
     Active Substance: RISPERIDONE
     Indication: AUTISM
     Dosage: 1.5 DF, QD BEFORE GOING TO BED
     Route: 048
     Dates: start: 201402, end: 201410

REACTIONS (6)
  - Feeling abnormal [Not Recovered/Not Resolved]
  - Mood altered [Unknown]
  - Agitation [Not Recovered/Not Resolved]
  - Intentional self-injury [Not Recovered/Not Resolved]
  - Haemorrhage [Not Recovered/Not Resolved]
  - Drug ineffective [Unknown]
